FAERS Safety Report 24197128 (Version 1)
Quarter: 2024Q3

REPORT INFORMATION
  Report Type: Spontaneous
  Country: CN (occurrence: CN)
  Receive Date: 20240810
  Receipt Date: 20240810
  Transmission Date: 20241016
  Serious: Yes (Other)
  Sender: BAXTER
  Company Number: None

PATIENT
  Age: 35 Year
  Sex: Female

DRUGS (1)
  1. METRONIDAZOLE [Suspect]
     Active Substance: METRONIDAZOLE
     Indication: Anti-infective therapy
     Dosage: 100 MG, TWICE DAILY (DOSAGE FORM: INJECTION)
     Route: 041
     Dates: start: 20240707, end: 20240710

REACTIONS (4)
  - Pain in jaw [Recovered/Resolved]
  - Discomfort [Recovered/Resolved]
  - Swelling face [Recovered/Resolved]
  - Hypoaesthesia [Recovered/Resolved]

NARRATIVE: CASE EVENT DATE: 20240710
